FAERS Safety Report 17814297 (Version 3)
Quarter: 2020Q2

REPORT INFORMATION
  Report Type: Report from Study
  Country: KR (occurrence: KR)
  Receive Date: 20200521
  Receipt Date: 20200616
  Transmission Date: 20200714
  Serious: Yes (Other)
  Sender: FDA-Public Use
  Company Number: KR-CELLTRION INC.-2020KR022504

PATIENT

DRUGS (2)
  1. REMSIMA [Suspect]
     Active Substance: INFLIXIMAB
     Indication: ANKYLOSING SPONDYLITIS
     Dosage: 5 MG/KG, INTERVAL 6 WEEKS
     Route: 065
  2. CELECOXIB. [Concomitant]
     Active Substance: CELECOXIB
     Dosage: UNK

REACTIONS (1)
  - Intervertebral disc disorder [Recovered/Resolved]

NARRATIVE: CASE EVENT DATE: 20190409
